FAERS Safety Report 6998250-3 (Version None)
Quarter: 2010Q3

REPORT INFORMATION
  Report Type: 
  Country: None (occurrence: None)
  Receive Date: 20100920
  Receipt Date: 20100323
  Transmission Date: 20110219
  Serious: No
  Sender: FDA-Public Use
  Company Number: US-ASTRAZENECA-2010SE12846

PATIENT
  Age: 58 Year
  Sex: Female
  Weight: 45.4 kg

DRUGS (1)
  1. SEROQUEL XR [Suspect]
     Route: 048
     Dates: start: 20100302

REACTIONS (2)
  - FEELING ABNORMAL [None]
  - IMPAIRED SELF-CARE [None]
